FAERS Safety Report 10676262 (Version 2)
Quarter: 2014Q4

REPORT INFORMATION
  Report Type: Spontaneous
  Country: TR (occurrence: TR)
  Receive Date: 20141226
  Receipt Date: 20141226
  Transmission Date: 20150529
  Serious: Yes (Death, Hospitalization, Other)
  Sender: FDA-Public Use
  Company Number: TR-CIPLA LTD.-2014TR02873

PATIENT

DRUGS (2)
  1. PACLITAXEL. [Suspect]
     Active Substance: PACLITAXEL
     Indication: OVARIAN CANCER
     Dosage: 175 MG/M2 3 HOUR
  2. CARBOPLATIN. [Suspect]
     Active Substance: CARBOPLATIN
     Indication: OVARIAN CANCER
     Dosage: AREA UNDER THE CURVE (AUC) 5

REACTIONS (7)
  - Renal failure [Unknown]
  - Pancytopenia [Recovered/Resolved]
  - Sepsis [Unknown]
  - Deafness [Unknown]
  - Nausea [Unknown]
  - Cardiac arrest [Fatal]
  - Febrile neutropenia [Unknown]
